FAERS Safety Report 6922562-2 (Version None)
Quarter: 2010Q3

REPORT INFORMATION
  Report Type: 
  Country: None (occurrence: None)
  Receive Date: 20100813
  Receipt Date: 20100730
  Transmission Date: 20110219
  Serious: Yes (Life-Threatening, Hospitalization, Disabling, Other)
  Sender: FDA-Public Use
  Company Number: US-ELI_LILLY_AND_COMPANY-US201008002577

PATIENT
  Sex: Male

DRUGS (1)
  1. FORTEO [Suspect]
     Indication: OSTEOPOROSIS
     Dosage: 20 UG, DAILY (1/D)
     Dates: end: 20100525

REACTIONS (11)
  - ABASIA [None]
  - ABDOMINAL PAIN [None]
  - BALANCE DISORDER [None]
  - CARDIAC ARREST [None]
  - CEREBROVASCULAR ACCIDENT [None]
  - COORDINATION ABNORMAL [None]
  - HYPERSENSITIVITY [None]
  - HYPOAESTHESIA [None]
  - MONOPARESIS [None]
  - OVERDOSE [None]
  - PNEUMONIA [None]
